FAERS Safety Report 15287456 (Version 4)
Quarter: 2018Q4

REPORT INFORMATION
  Report Type: Spontaneous
  Country: TH (occurrence: TH)
  Receive Date: 20180817
  Receipt Date: 20181120
  Transmission Date: 20190204
  Serious: Yes (Hospitalization)
  Sender: FDA-Public Use
  Company Number: TH-ASTRAZENECA-2018SF03595

PATIENT
  Age: 24262 Day
  Sex: Female
  Weight: 60 kg

DRUGS (20)
  1. ENAPRIL [Concomitant]
     Active Substance: ENALAPRIL
     Route: 048
     Dates: start: 20160318
  2. BILAXTEN [Concomitant]
     Active Substance: BILASTINE
     Route: 048
     Dates: start: 20171222
  3. IRESSA [Suspect]
     Active Substance: GEFITINIB
     Indication: NON-SMALL CELL LUNG CANCER METASTATIC
     Route: 048
     Dates: start: 20160115, end: 20180615
  4. ATIVAN [Concomitant]
     Active Substance: LORAZEPAM
     Dosage: 1 TABLET,DAILY
     Route: 048
     Dates: start: 2015
  5. CETRIZINE [Concomitant]
     Active Substance: CETIRIZINE HYDROCHLORIDE
     Dosage: 1 TABLET DAILY
     Route: 048
     Dates: start: 20160122
  6. TRAMADOL. [Concomitant]
     Active Substance: TRAMADOL
     Dosage: 1 TABLET,AS REQUIRED
     Route: 048
     Dates: start: 2014
  7. CARBOCISTEINE [Concomitant]
     Active Substance: CARBOCYSTEINE
     Dosage: 1 TABLET AS REQUIRED
     Route: 048
     Dates: start: 2014
  8. LEVOCETIRIZINE [Concomitant]
     Active Substance: LEVOCETIRIZINE
     Route: 048
     Dates: start: 20171228
  9. ROPECT [Concomitant]
     Dosage: 1 TABLET AS REQUIRED
     Route: 048
     Dates: start: 2015
  10. OMEPRAZOLE. [Concomitant]
     Active Substance: OMEPRAZOLE
     Route: 048
     Dates: start: 2014
  11. CLINDAMYCIN. [Concomitant]
     Active Substance: CLINDAMYCIN
     Dosage: TEO TIMES DAILY
     Route: 003
     Dates: start: 20170921
  12. LYRICA [Concomitant]
     Active Substance: PREGABALIN
     Route: 048
     Dates: start: 20180323
  13. TAGRISSO [Suspect]
     Active Substance: OSIMERTINIB
     Indication: NON-SMALL CELL LUNG CANCER METASTATIC
     Route: 048
     Dates: start: 20160115, end: 20180615
  14. MEPTIN [Concomitant]
     Active Substance: PROCATEROL HYDROCHLORIDE
     Route: 048
     Dates: start: 20180323
  15. TRIAMCINOLONE [Concomitant]
     Active Substance: TRIAMCINOLONE
     Dosage: TWO TIMES A DAY
     Route: 003
     Dates: start: 20170921
  16. ACETYLCYSTEINE. [Concomitant]
     Active Substance: ACETYLCYSTEINE
     Route: 048
     Dates: start: 20160122
  17. UREA. [Concomitant]
     Active Substance: UREA
     Dosage: 4 TIMES,AS REQUIRED
     Route: 003
     Dates: start: 20160129
  18. METHYL SALICYLATE [Concomitant]
     Active Substance: METHYL SALICYLATE
     Dosage: AS REQUIRED
     Route: 058
     Dates: start: 20180209
  19. XANAX [Concomitant]
     Active Substance: ALPRAZOLAM
     Route: 048
     Dates: start: 20160122
  20. ALUM MILK [Concomitant]
     Dosage: 30.0MG AS REQUIRED
     Route: 048
     Dates: start: 20171006

REACTIONS (1)
  - Acute kidney injury [Recovered/Resolved]

NARRATIVE: CASE EVENT DATE: 20180809
